FAERS Safety Report 20790200 (Version 3)
Quarter: 2022Q2

REPORT INFORMATION
  Report Type: Report from Study
  Country: FR (occurrence: FR)
  Receive Date: 20220505
  Receipt Date: 20220519
  Transmission Date: 20220721
  Serious: Yes (Other)
  Sender: FDA-Public Use
  Company Number: FR-ROCHE-3074385

PATIENT
  Age: 68 Year
  Sex: Female
  Weight: 39 kg

DRUGS (4)
  1. CARBOPLATIN [Suspect]
     Active Substance: CARBOPLATIN
     Indication: Ovarian cancer
     Dosage: 220MG
     Route: 042
     Dates: start: 20210617, end: 20211021
  2. GEMCITABINE HYDROCHLORIDE [Suspect]
     Active Substance: GEMCITABINE HYDROCHLORIDE
     Indication: Ovarian cancer
     Dosage: 780 MG (DAY 1 AND DAY 8)
     Route: 042
     Dates: start: 20210617, end: 20211021
  3. NIRAPARIB [Suspect]
     Active Substance: NIRAPARIB
     Indication: Ovarian cancer
     Dosage: 200 MG (FROM DAY 1 TO 21)
     Route: 048
     Dates: start: 20211202, end: 20220407
  4. ATEZOLIZUMAB [Suspect]
     Active Substance: ATEZOLIZUMAB
     Indication: Ovarian cancer
     Dosage: UNK, EVERY 3 WEEKS
     Route: 041
     Dates: start: 20210617, end: 20220317

REACTIONS (1)
  - Hepatic cytolysis [Recovered/Resolved]

NARRATIVE: CASE EVENT DATE: 20220405
